FAERS Safety Report 16111117 (Version 1)
Quarter: 2019Q1

REPORT INFORMATION
  Report Type: Spontaneous
  Country: US (occurrence: US)
  Receive Date: 20190325
  Receipt Date: 20190325
  Transmission Date: 20190418
  Serious: Yes (Other)
  Sender: FDA-Public Use
  Company Number: US-ASTELLAS-2019US003451

PATIENT
  Sex: Female

DRUGS (1)
  1. LEXISCAN [Suspect]
     Active Substance: REGADENOSON
     Indication: CARDIAC STRESS TEST
     Dosage: UNK UNK, UNKNOWN FREQ.
     Route: 065

REACTIONS (10)
  - Cognitive disorder [Not Recovered/Not Resolved]
  - Contusion [Unknown]
  - Headache [Recovering/Resolving]
  - Visual impairment [Unknown]
  - Central pain syndrome [Not Recovered/Not Resolved]
  - Fall [Not Recovered/Not Resolved]
  - Blood pressure increased [Recovering/Resolving]
  - Chills [Recovered/Resolved]
  - Tremor [Recovered/Resolved]
  - Head injury [Unknown]
